FAERS Safety Report 21187470 (Version 1)
Quarter: 2022Q3

REPORT INFORMATION
  Report Type: Spontaneous
  Country: US (occurrence: US)
  Receive Date: 20220808
  Receipt Date: 20220808
  Transmission Date: 20221027
  Serious: No
  Sender: FDA-Public Use
  Company Number: US-BIOMARINAP-US-2022-144745

PATIENT

DRUGS (1)
  1. KUVAN [Suspect]
     Active Substance: SAPROPTERIN DIHYDROCHLORIDE
     Indication: Phenylketonuria
     Dosage: UNK UNK, QD
     Route: 048
     Dates: start: 2008

REACTIONS (1)
  - Yellow skin [Not Recovered/Not Resolved]

NARRATIVE: CASE EVENT DATE: 20220101
